FAERS Safety Report 24837744 (Version 6)
Quarter: 2025Q1

REPORT INFORMATION
  Report Type: Spontaneous
  Country: US (occurrence: US)
  Receive Date: 20250113
  Receipt Date: 20250306
  Transmission Date: 20250409
  Serious: No
  Sender: IPSEN BIOPHARMACEUTICALS, INC.
  Company Number: US-IPSEN Group, Research and Development-2025-00569

PATIENT
  Age: 69 Year
  Sex: Female
  Weight: 52.6 kg

DRUGS (3)
  1. IQIRVO [Suspect]
     Active Substance: ELAFIBRANOR
     Indication: Primary biliary cholangitis
     Route: 048
     Dates: start: 20241212
  2. IQIRVO [Suspect]
     Active Substance: ELAFIBRANOR
     Dosage: TAKE EVERY OTHER DAY
     Route: 048
     Dates: end: 20250115
  3. IQIRVO [Suspect]
     Active Substance: ELAFIBRANOR
     Route: 048

REACTIONS (21)
  - Dyspnoea [Recovering/Resolving]
  - Swelling [Unknown]
  - Weight increased [Recovering/Resolving]
  - Somnolence [Recovering/Resolving]
  - Dry eye [Recovering/Resolving]
  - Dyspepsia [Unknown]
  - Feeling abnormal [Recovering/Resolving]
  - Tremor [Unknown]
  - Asthenia [Unknown]
  - Nausea [Recovering/Resolving]
  - Abdominal discomfort [Unknown]
  - Dysuria [Unknown]
  - Nasopharyngitis [Unknown]
  - Oedema [Recovering/Resolving]
  - Fatigue [Not Recovered/Not Resolved]
  - Abdominal pain [Recovering/Resolving]
  - Urine flow decreased [Recovering/Resolving]
  - Frequent bowel movements [Recovering/Resolving]
  - Dizziness [Not Recovered/Not Resolved]
  - Adverse drug reaction [Unknown]
  - Off label use [Unknown]
